FAERS Safety Report 8230503-3 (Version None)
Quarter: 2012Q1

REPORT INFORMATION
  Report Type: 
  Country: None (occurrence: None)
  Receive Date: 20120323
  Receipt Date: 20120315
  Transmission Date: 20120608
  Serious: Yes (Hospitalization, Other)
  Sender: FDA-Public Use
  Company Number: US-BAYER-2011-079296

PATIENT
  Age: 53 Year
  Sex: Female

DRUGS (11)
  1. NSAID'S [Concomitant]
  2. ESTROVEN [Concomitant]
     Indication: HOT FLUSH
  3. HERBAL PREPARATION [Concomitant]
     Indication: PERIPHERAL VASCULAR DISORDER
  4. HORSECHESTNUT 2000 COMPLEX [Concomitant]
     Indication: PERIPHERAL VASCULAR DISORDER
  5. HYDROCHLOROTHIAZIDE [Concomitant]
     Indication: DIURETIC THERAPY
  6. ANTITHROMBOTIC AGENTS [Concomitant]
  7. AVAPRO [Concomitant]
     Indication: HYPERTENSION
  8. LEXAPRO [Concomitant]
     Indication: DEPRESSION
  9. LIPITOR [Concomitant]
  10. YASMIN [Suspect]
     Dosage: UNK
     Dates: start: 20000101, end: 20080101
  11. ASCORBIC ACID [Concomitant]

REACTIONS (6)
  - PAIN [None]
  - THROMBOPHLEBITIS SUPERFICIAL [None]
  - DEEP VEIN THROMBOSIS [None]
  - OEDEMA PERIPHERAL [None]
  - PAIN IN EXTREMITY [None]
  - THROMBOSIS [None]
